FAERS Safety Report 5018618-4 (Version None)
Quarter: 2006Q2

REPORT INFORMATION
  Report Type: 
  Country: None (occurrence: None)
  Receive Date: 20060414
  Receipt Date: 20060103
  Transmission Date: 20061013
  Serious: No
  Sender: FDA-Public Use
  Company Number: 2006SP000015

PATIENT
  Age: 66 Year
  Sex: Male
  Weight: 127.0072 kg

DRUGS (4)
  1. LUNESTA [Suspect]
     Indication: INITIAL INSOMNIA
     Dosage: 1 MG;HS;ORAL
     Route: 048
     Dates: start: 20051201
  2. TOPROL-XL [Concomitant]
  3. BENICAR [Concomitant]
  4. THYROID TAB [Concomitant]

REACTIONS (3)
  - FATIGUE [None]
  - POLLAKIURIA [None]
  - SOMNOLENCE [None]
